FAERS Safety Report 10004008 (Version 2)
Quarter: 2014Q1

REPORT INFORMATION
  Report Type: Spontaneous
  Country: US (occurrence: US)
  Receive Date: 20140312
  Receipt Date: 20140312
  Transmission Date: 20141002
  Serious: No
  Sender: FDA-Public Use
  Company Number: US-INCYTE CORPORATION-2013IN003026

PATIENT
  Age: 66 Year
  Sex: Female

DRUGS (5)
  1. JAKAFI [Suspect]
     Indication: MYELOFIBROSIS
     Dosage: 15 MG, BID
     Route: 048
     Dates: start: 20121030, end: 201308
  2. JAKAFI [Suspect]
     Dosage: 20 MG, BID
     Route: 048
     Dates: start: 20130823
  3. SYNTHROID [Concomitant]
     Indication: MYELOFIBROSIS
     Dosage: 150 ?G, QD
  4. METOPROLOL [Concomitant]
     Indication: BLOOD PRESSURE
     Dosage: 12.5 BID
  5. EFFEXOR [Concomitant]
     Dosage: 75 MG, QD

REACTIONS (4)
  - Hypothyroidism [Recovered/Resolved]
  - Night sweats [Unknown]
  - Fatigue [Unknown]
  - Blood count abnormal [Unknown]
